FAERS Safety Report 10655322 (Version 2)
Quarter: 2014Q4

REPORT INFORMATION
  Report Type: Report from Study
  Country: US (occurrence: US)
  Receive Date: 20141216
  Receipt Date: 20141222
  Transmission Date: 20150529
  Serious: Yes (Other)
  Sender: FDA-Public Use
  Company Number: US-BAXTER-2014BAX073669

PATIENT
  Sex: Female

DRUGS (2)
  1. GAMMAGARD LIQUID [Suspect]
     Active Substance: HUMAN IMMUNOGLOBULIN G
     Indication: PRODUCT USED FOR UNKNOWN INDICATION
     Route: 058
  2. GAMMAGARD LIQUID [Suspect]
     Active Substance: HUMAN IMMUNOGLOBULIN G
     Route: 058
     Dates: start: 20141029, end: 20141029

REACTIONS (9)
  - Pulmonary function test decreased [Unknown]
  - Sinusitis [Unknown]
  - Bone pain [Unknown]
  - Anxiety [Unknown]
  - Dyspnoea [Unknown]
  - Peripheral swelling [Unknown]
  - Hepatic mass [Unknown]
  - Lymphadenopathy [Unknown]
  - Drug dose omission [Unknown]
